FAERS Safety Report 21965288 (Version 1)
Quarter: 2023Q1

REPORT INFORMATION
  Report Type: Report from Study
  Country: CR (occurrence: CR)
  Receive Date: 20230208
  Receipt Date: 20230208
  Transmission Date: 20230417
  Serious: Yes (Other)
  Sender: FDA-Public Use
  Company Number: CR-JNJFOC-20230207492

PATIENT
  Age: 29 Year
  Sex: Male
  Weight: 77 kg

DRUGS (2)
  1. SPRAVATO [Suspect]
     Active Substance: ESKETAMINE
     Indication: Major depression
     Dates: start: 20220629, end: 202207
  2. SPRAVATO [Suspect]
     Active Substance: ESKETAMINE
     Indication: Suicidal ideation
     Dates: end: 20221007

REACTIONS (2)
  - Suicidal ideation [Unknown]
  - Off label use [Unknown]

NARRATIVE: CASE EVENT DATE: 20221001
